FAERS Safety Report 8352117-7 (Version None)
Quarter: 2012Q2

REPORT INFORMATION
  Report Type: 
  Country: None (occurrence: None)
  Receive Date: 20120511
  Receipt Date: 20120501
  Transmission Date: 20120825
  Serious: Yes (Hospitalization)
  Sender: FDA-Public Use
  Company Number: GB-JNJFOC-20120407818

PATIENT
  Age: 43 Year
  Sex: Male
  Weight: 148.5 kg

DRUGS (7)
  1. LASOPRAZOLE [Concomitant]
  2. ACETAMINOPHEN AND CODEINE PHOSPHATE [Concomitant]
  3. REMICADE [Suspect]
     Indication: PSORIASIS
     Route: 042
     Dates: start: 20100629
  4. BENDROFLUMETHIAZIDE [Concomitant]
     Dates: start: 20100405
  5. PERINDOPRIL ERBUMINE [Concomitant]
     Dates: start: 20100405
  6. AMLODIPINE BESYLATE [Concomitant]
     Dates: start: 20100405
  7. DEPO-MEDROL [Concomitant]

REACTIONS (1)
  - ERYTHRODERMIC PSORIASIS [None]
